FAERS Safety Report 9696154 (Version 1)
Quarter: 2013Q4

REPORT INFORMATION
  Report Type: Spontaneous
  Country: US (occurrence: DE)
  Receive Date: 20131119
  Receipt Date: 20131119
  Transmission Date: 20140711
  Serious: Yes (Hospitalization)
  Sender: FDA-Public Use
  Company Number: DE-B.I. PHARMACEUTICALS,INC./RIDGEFIELD-2013-BI-37477DE

PATIENT
  Age: 62 Year
  Sex: Male
  Weight: 76 kg

DRUGS (9)
  1. SPIRIVA [Suspect]
     Indication: CHRONIC OBSTRUCTIVE PULMONARY DISEASE
     Dosage: 18 MCG
     Dates: start: 20131105
  2. METROHEXAL [Concomitant]
     Dosage: DOSE PER APPLICATION: 17.5
  3. ATACAND [Concomitant]
  4. ASS [Concomitant]
     Dosage: DOSE PER APPLICATION: 100
  5. SIMVAHEXAL [Concomitant]
  6. PANTOPRAZOL [Concomitant]
  7. PREDNISOLON [Concomitant]
  8. BERODUAL SPRAY [Concomitant]
  9. FORMOTOP [Concomitant]

REACTIONS (4)
  - Dyspnoea [Not Recovered/Not Resolved]
  - Vision blurred [Not Recovered/Not Resolved]
  - Musculoskeletal chest pain [Not Recovered/Not Resolved]
  - Abdominal pain upper [Not Recovered/Not Resolved]
